FAERS Safety Report 4596905-1 (Version None)
Quarter: 2005Q1

REPORT INFORMATION
  Report Type: 
  Country: None (occurrence: None)
  Receive Date: 20050228
  Receipt Date: 20050215
  Transmission Date: 20050727
  Serious: Yes (Hospitalization)
  Sender: FDA-Public Use
  Company Number: 2005UW02559

PATIENT
  Age: 53 Year
  Sex: Male
  Weight: 85.7298 kg

DRUGS (5)
  1. IRESSA [Suspect]
     Indication: NON-SMALL CELL LUNG CANCER
     Dosage: 250 MG QD PO
     Route: 048
     Dates: start: 20040607
  2. NORVASC [Concomitant]
  3. ADVAIR DISKUS 100/50 [Concomitant]
  4. COMBIVENT [Concomitant]
  5. ASPIRIN [Concomitant]

REACTIONS (3)
  - ATELECTASIS [None]
  - COUGH [None]
  - LUNG INFILTRATION [None]
